FAERS Safety Report 7973209-8 (Version None)
Quarter: 2011Q4

REPORT INFORMATION
  Report Type: 
  Country: None (occurrence: None)
  Receive Date: 20111213
  Receipt Date: 20111130
  Transmission Date: 20120403
  Serious: Yes (Other)
  Sender: FDA-Public Use
  Company Number: PHHY2011IT106190

PATIENT
  Age: 50 Year
  Sex: Female

DRUGS (2)
  1. STEROIDS NOS [Concomitant]
  2. CYCLOSPORINE [Suspect]
     Indication: RENAL TRANSPLANT

REACTIONS (6)
  - URINARY TRACT INFECTION [None]
  - NEPHROLITHIASIS [None]
  - PROTEINURIA [None]
  - MONOCLONAL GAMMOPATHY [None]
  - HEPATITIS C [None]
  - PYELONEPHRITIS ACUTE [None]
